FAERS Safety Report 6461729-7 (Version None)
Quarter: 2009Q4

REPORT INFORMATION
  Report Type: 
  Country: None (occurrence: None)
  Receive Date: 20091123
  Receipt Date: 20091109
  Transmission Date: 20100525
  Serious: Yes (Life-Threatening, Hospitalization)
  Sender: FDA-Public Use
  Company Number: 2009AC000165

PATIENT
  Age: 55 Year
  Sex: Female

DRUGS (23)
  1. DIGOXIN [Suspect]
     Indication: CARDIAC FAILURE CONGESTIVE
     Dosage: 0.125 MG; QD; PO
     Route: 048
     Dates: start: 20040601, end: 20081124
  2. LASIX [Concomitant]
  3. POTASSIUM [Concomitant]
  4. LISINOPRIL [Concomitant]
  5. ASPIRIN [Concomitant]
  6. COREG [Concomitant]
  7. ADVAIR DISKUS 100/50 [Concomitant]
  8. ALBUTEROL [Concomitant]
  9. ATROVENT [Concomitant]
  10. ATENOLOL [Concomitant]
  11. ACIPHEX [Concomitant]
  12. PROLISEC [Concomitant]
  13. PREMARIN [Concomitant]
  14. IPRATROPIUM [Concomitant]
  15. ALBUTEROL [Concomitant]
  16. LISINOPRIL [Concomitant]
  17. CARVEDILOL [Concomitant]
  18. LASIX [Concomitant]
  19. POTASSIUM [Concomitant]
  20. ADVAIR DISKUS 100/50 [Concomitant]
  21. ASPIRIN [Concomitant]
  22. COREG [Concomitant]
  23. ATROVENT [Concomitant]

REACTIONS (36)
  - ABDOMINAL DISTENSION [None]
  - ABDOMINAL PAIN [None]
  - ACUTE MYOCARDIAL INFARCTION [None]
  - ACUTE PULMONARY OEDEMA [None]
  - AORTIC VALVE INCOMPETENCE [None]
  - ARTERIOSPASM CORONARY [None]
  - ATRIAL FIBRILLATION [None]
  - CARDIOMEGALY [None]
  - CARDIOMYOPATHY [None]
  - CEREBROVASCULAR ACCIDENT [None]
  - CHOLELITHIASIS [None]
  - DEEP VEIN THROMBOSIS [None]
  - DIPLOPIA [None]
  - DIZZINESS [None]
  - DYSPNOEA [None]
  - GASTROOESOPHAGEAL REFLUX DISEASE [None]
  - HAEMORRHAGE [None]
  - HEART RATE INCREASED [None]
  - INFECTION [None]
  - INJURY [None]
  - LEFT VENTRICULAR HYPERTROPHY [None]
  - MITRAL VALVE INCOMPETENCE [None]
  - MITRAL VALVE STENOSIS [None]
  - MYOCARDIAL INFARCTION [None]
  - NAUSEA [None]
  - NOCTURIA [None]
  - PALPITATIONS [None]
  - PEPTIC ULCER [None]
  - PERICARDIAL EFFUSION [None]
  - PNEUMONIA [None]
  - PULMONARY HYPERTENSION [None]
  - RESPIRATORY DISTRESS [None]
  - RESPIRATORY FAILURE [None]
  - RHEUMATIC HEART DISEASE [None]
  - SUPRAVENTRICULAR TACHYCARDIA [None]
  - VISION BLURRED [None]
